FAERS Safety Report 16716745 (Version 3)
Quarter: 2019Q3

REPORT INFORMATION
  Report Type: Spontaneous
  Country: US (occurrence: US)
  Receive Date: 20190819
  Receipt Date: 20190823
  Transmission Date: 20191005
  Serious: No
  Sender: FDA-Public Use
  Company Number: US-ALEXION-A201912324

PATIENT
  Age: 28 Year
  Sex: Female

DRUGS (1)
  1. STRENSIQ [Suspect]
     Active Substance: ASFOTASE ALFA
     Indication: HYPOPHOSPHATASIA
     Route: 065

REACTIONS (16)
  - Gastrointestinal disorder [Unknown]
  - Bone pain [Unknown]
  - Myalgia [Unknown]
  - Physical disability [Unknown]
  - Fatigue [Unknown]
  - Discomfort [Unknown]
  - Injection site hypertrophy [Unknown]
  - Injection site bruising [Unknown]
  - Infusion related reaction [Recovered/Resolved]
  - Emotional distress [Unknown]
  - Loss of personal independence in daily activities [Unknown]
  - Pain [Unknown]
  - Dyspnoea [Unknown]
  - Weight increased [Unknown]
  - Arthralgia [Unknown]
  - Injection site pain [Unknown]
